FAERS Safety Report 6727500-3 (Version None)
Quarter: 2010Q2

REPORT INFORMATION
  Report Type: 
  Country: None (occurrence: None)
  Receive Date: 20100517
  Receipt Date: 20100510
  Transmission Date: 20101027
  Serious: Yes (Disabling, Other)
  Sender: FDA-Public Use
  Company Number: FI-AMGEN-QUU402351

PATIENT
  Sex: Male
  Weight: 92 kg

DRUGS (5)
  1. CINACALCET HYDROCHLORIDE [Suspect]
     Indication: HYPERPARATHYROIDISM SECONDARY
     Route: 048
     Dates: start: 20090901, end: 20100323
  2. LANTHANUM CARBONATE [Suspect]
     Dates: start: 20080301, end: 20100323
  3. AMARYL [Concomitant]
     Dates: start: 20050101
  4. ARANESP [Concomitant]
     Dates: start: 20070101
  5. PARICALCITOL [Concomitant]
     Dates: end: 20090101

REACTIONS (3)
  - MENISCUS LESION [None]
  - OSTEONECROSIS [None]
  - STRESS FRACTURE [None]
